FAERS Safety Report 21484109 (Version 1)
Quarter: 2022Q4

REPORT INFORMATION
  Report Type: Spontaneous
  Country: US (occurrence: US)
  Receive Date: 20221020
  Receipt Date: 20221020
  Transmission Date: 20230113
  Serious: No
  Sender: FDA-Public Use
  Company Number: US-ALLERGAN-2221194US

PATIENT
  Age: 83 Year
  Sex: Male
  Weight: 127 kg

DRUGS (8)
  1. LINZESS [Suspect]
     Active Substance: LINACLOTIDE
     Indication: Constipation
     Dosage: ACTULA: 290 ?G, QD, WITH EMPTY STOMACH
     Route: 048
     Dates: start: 20220618
  2. DUTASTERIDE [Concomitant]
     Active Substance: DUTASTERIDE
     Indication: Prostatic disorder
     Dosage: UNK
  3. ADVICOR [Concomitant]
     Active Substance: LOVASTATIN\NIACIN
     Indication: Cardiac disorder
     Dosage: 40 MILLIGRAM
  4. ALLOPURINOL [Concomitant]
     Active Substance: ALLOPURINOL
     Indication: Gouty arthritis
  5. ATORVASTATIN [Concomitant]
     Active Substance: ATORVASTATIN
     Dosage: 20 MILLIGRAM
  6. PFIZER-BIONTECH COVID-19 VACCINE [Concomitant]
     Active Substance: TOZINAMERAN
     Indication: COVID-19 immunisation
     Dosage: UNK UNK, SINGLE
     Route: 030
     Dates: start: 202110, end: 202110
  7. PFIZER-BIONTECH COVID-19 VACCINE [Concomitant]
     Active Substance: TOZINAMERAN
     Dosage: UNK UNK, SINGLE
     Route: 030
     Dates: start: 202109, end: 202109
  8. Genlanta [Concomitant]
     Dosage: UNK

REACTIONS (6)
  - Bowel movement irregularity [Not Recovered/Not Resolved]
  - Abdominal pain upper [Recovered/Resolved]
  - Chest pain [Unknown]
  - Abdominal distension [Unknown]
  - Diarrhoea [Not Recovered/Not Resolved]
  - Product quality issue [Unknown]

NARRATIVE: CASE EVENT DATE: 20220618
